FAERS Safety Report 8803164 (Version 2)
Quarter: 2012Q4

REPORT INFORMATION
  Report Type: 
  Country: JP (occurrence: JP)
  Receive Date: 20120924
  Receipt Date: 20121003
  Transmission Date: 20130627
  Serious: Yes (Other)
  Sender: FDA-Public Use
  Company Number: PHHY2012JP081770

PATIENT
  Age: 55 Year
  Sex: Female

DRUGS (3)
  1. FLUVASTATIN [Suspect]
     Indication: DYSLIPIDAEMIA
     Route: 048
     Dates: start: 2008, end: 2008
  2. EZETIMIBE [Concomitant]
  3. ASPIRIN [Concomitant]

REACTIONS (3)
  - Aneurysm [Unknown]
  - Hepatic function abnormal [Unknown]
  - Pancreatic mass [Unknown]
